FAERS Safety Report 4710368-4 (Version None)
Quarter: 2005Q3

REPORT INFORMATION
  Report Type: 
  Country: None (occurrence: None)
  Receive Date: 20050707
  Receipt Date: 20050622
  Transmission Date: 20060218
  Serious: Yes (Other)
  Sender: FDA-Public Use
  Company Number: USA0506101116

PATIENT
  Age: 31 Year
  Sex: Female

DRUGS (1)
  1. PROZAC [Suspect]
     Indication: DEPRESSION
     Dates: start: 19910101, end: 19910101

REACTIONS (3)
  - DIPLOPIA [None]
  - VISION BLURRED [None]
  - VISUAL ACUITY REDUCED [None]
